FAERS Safety Report 6500405-9 (Version None)
Quarter: 2009Q4

REPORT INFORMATION
  Report Type: 
  Country: None (occurrence: None)
  Receive Date: 20091216
  Receipt Date: 20091208
  Transmission Date: 20100525
  Serious: Yes (Other)
  Sender: FDA-Public Use
  Company Number: US-SANOFI-AVENTIS-2009SA005919

PATIENT
  Age: 67 Year
  Sex: Male
  Weight: 121 kg

DRUGS (1)
  1. MULTAQ [Suspect]
     Route: 048
     Dates: start: 20091021, end: 20091109

REACTIONS (8)
  - ACUTE PULMONARY OEDEMA [None]
  - CARDIAC FAILURE [None]
  - CONDITION AGGRAVATED [None]
  - COUGH [None]
  - DYSPNOEA [None]
  - DYSPNOEA EXERTIONAL [None]
  - WEIGHT INCREASED [None]
  - WHEEZING [None]
